FAERS Safety Report 8600514-4 (Version None)
Quarter: 2012Q3

REPORT INFORMATION
  Report Type: 
  Country: None (occurrence: None)
  Receive Date: 20120808
  Receipt Date: 20120808
  Transmission Date: 20120928
  Serious: No
  Sender: FDA-Public Use
  Company Number: None

PATIENT
  Sex: Female
  Weight: 62.5964 kg

DRUGS (1)
  1. FLUTICASONE PROPIONATE [Suspect]
     Dosage: 2 SPRAYS 50 MCG 1X DAY NASAL 7/7 TO 7/9
     Route: 045

REACTIONS (3)
  - PRODUCT ODOUR ABNORMAL [None]
  - NO REACTION ON PREVIOUS EXPOSURE TO DRUG [None]
  - HEADACHE [None]
